FAERS Safety Report 6357284-2 (Version None)
Quarter: 2009Q3

REPORT INFORMATION
  Report Type: 
  Country: None (occurrence: None)
  Receive Date: 20090916
  Receipt Date: 20090904
  Transmission Date: 20100115
  Serious: Yes (Other)
  Sender: FDA-Public Use
  Company Number: PHHY2009BR37679

PATIENT
  Sex: Female

DRUGS (2)
  1. DIOVAN [Suspect]
     Dosage: UNK
  2. INSULIN [Concomitant]

REACTIONS (4)
  - BACK PAIN [None]
  - HYPERPYREXIA [None]
  - MUSCULAR WEAKNESS [None]
  - NAUSEA [None]
